FAERS Safety Report 7572531-7 (Version None)
Quarter: 2011Q2

REPORT INFORMATION
  Report Type: 
  Country: None (occurrence: None)
  Receive Date: 20110627
  Receipt Date: 20110615
  Transmission Date: 20111010
  Serious: Yes (Hospitalization)
  Sender: FDA-Public Use
  Company Number: 2006BI005607

PATIENT
  Age: 72 Year
  Sex: Female

DRUGS (2)
  1. AVONEX [Suspect]
     Route: 030
     Dates: start: 20061011
  2. AVONEX [Suspect]
     Indication: MULTIPLE SCLEROSIS
     Route: 030
     Dates: start: 20031001, end: 20060705

REACTIONS (8)
  - IMMUNODEFICIENCY [None]
  - BURSITIS [None]
  - MUSCLE ATROPHY [None]
  - BREAST CANCER STAGE II [None]
  - BREAST INFECTION [None]
  - MACULAR DEGENERATION [None]
  - GAIT DISTURBANCE [None]
  - ALOPECIA [None]
